FAERS Safety Report 15192478 (Version 1)
Quarter: 2018Q3

REPORT INFORMATION
  Report Type: Spontaneous
  Country: US (occurrence: US)
  Receive Date: 20180725
  Receipt Date: 20180725
  Transmission Date: 20181010
  Serious: Yes (Other)
  Sender: FDA-Public Use
  Company Number: US-TEVA-2018-US-930739

PATIENT
  Sex: Female

DRUGS (1)
  1. VALSARTAN W/HYDROCHLOROTHIAZIDE [Suspect]
     Active Substance: HYDROCHLOROTHIAZIDE\VALSARTAN
     Indication: HYPERTENSION
     Dosage: 1 DOSAGE FORM: 160MG OF VALSARTAN /12.5MG OF HYDROCHLOROTHIAZIDE
     Route: 065
     Dates: start: 2002, end: 2017

REACTIONS (3)
  - Thyroid cancer [Unknown]
  - Gait disturbance [Unknown]
  - Dizziness [Unknown]
